FAERS Safety Report 5565206-7 (Version None)
Quarter: 2007Q4

REPORT INFORMATION
  Report Type: 
  Country: None (occurrence: None)
  Receive Date: 20071218
  Receipt Date: 20071212
  Transmission Date: 20080405
  Serious: Yes (Other)
  Sender: FDA-Public Use
  Company Number: AU-JNJFOC-20071203621

PATIENT
  Sex: Female
  Weight: 53 kg

DRUGS (3)
  1. REMINYL [Suspect]
     Indication: DRUG USE FOR UNKNOWN INDICATION
  2. SINEMET [Concomitant]
     Indication: PARKINSON'S DISEASE
     Route: 048
  3. CIPRAMIL [Concomitant]
     Indication: DEPRESSION
     Route: 048

REACTIONS (4)
  - CONFUSIONAL STATE [None]
  - DISORIENTATION [None]
  - DRUG WITHDRAWAL SYNDROME [None]
  - DYSPHASIA [None]
